FAERS Safety Report 4387299-5 (Version None)
Quarter: 2004Q2

REPORT INFORMATION
  Report Type: 
  Country: None (occurrence: None)
  Receive Date: 20040630
  Receipt Date: 20040407
  Transmission Date: 20050107
  Serious: No
  Sender: FDA-Public Use
  Company Number: US-GLAXOSMITHKLINE-A0506224A

PATIENT
  Age: 63 Year
  Sex: Female

DRUGS (3)
  1. ADVAIR HFA [Suspect]
     Indication: ASTHMA
     Dosage: 1PUFF TWICE PER DAY
     Route: 055
     Dates: start: 20031101
  2. IMMUNE GLOBULIN INTRAVENOUS (HUMAN) [Concomitant]
  3. CONCURRENT MEDICATIONS [Concomitant]

REACTIONS (3)
  - LARYNGEAL OEDEMA [None]
  - OROPHARYNGITIS FUNGAL [None]
  - PHARYNGEAL HAEMORRHAGE [None]
